FAERS Safety Report 7550012-4 (Version None)
Quarter: 2011Q2

REPORT INFORMATION
  Report Type: 
  Country: None (occurrence: None)
  Receive Date: 20110615
  Receipt Date: 20110531
  Transmission Date: 20111010
  Serious: No
  Sender: FDA-Public Use
  Company Number: US-B.I. PHARMACEUTICALS,INC./RIDGEFIELD-2011-BP-11692BP

PATIENT
  Age: 62 Year
  Sex: Male

DRUGS (5)
  1. PRADAXA [Suspect]
     Indication: ATRIAL FIBRILLATION
     Dosage: 300 MG
     Route: 048
     Dates: start: 20110214, end: 20110404
  2. PRAVASTATIN [Concomitant]
     Dosage: 20 MG
  3. AMLODIPINE [Concomitant]
     Dosage: 5 MG
  4. REQUIP [Concomitant]
     Dosage: 2 MG
  5. METOPROLOL SUCCINATE EXTENDED RELEASE [Concomitant]
     Dosage: 100 MG

REACTIONS (6)
  - HEADACHE [None]
  - HYPOAESTHESIA [None]
  - COLD SWEAT [None]
  - DIZZINESS [None]
  - MONOPLEGIA [None]
  - DYSPNOEA [None]
